FAERS Safety Report 15984393 (Version 1)
Quarter: 2019Q1

REPORT INFORMATION
  Report Type: Spontaneous
  Country: IT (occurrence: IT)
  Receive Date: 20190220
  Receipt Date: 20190220
  Transmission Date: 20190418
  Serious: Yes (Life-Threatening)
  Sender: FDA-Public Use
  Company Number: IT-ACCORD-108392

PATIENT
  Age: 88 Year
  Sex: Female
  Weight: 0 kg

DRUGS (9)
  1. SERENASE [Concomitant]
  2. MINIAS [Concomitant]
     Active Substance: LORMETAZEPAM
  3. CLEXANE [Concomitant]
     Active Substance: ENOXAPARIN SODIUM
  4. PERFALGAN [Concomitant]
     Active Substance: ACETAMINOPHEN
  5. ACICLOVIR [Concomitant]
     Active Substance: ACYCLOVIR
  6. MIRTAZAPINE. [Concomitant]
     Active Substance: MIRTAZAPINE
  7. FUROSEMIDE. [Suspect]
     Active Substance: FUROSEMIDE
     Indication: OEDEMA
     Route: 042
     Dates: start: 20180629, end: 20180707
  8. ASCORBIC ACID/GLUCOSE [Concomitant]
  9. SODIUM CHLORIDE. [Concomitant]
     Active Substance: SODIUM CHLORIDE

REACTIONS (2)
  - Hypokalaemia [Recovering/Resolving]
  - Hypomagnesaemia [Recovering/Resolving]

NARRATIVE: CASE EVENT DATE: 20180706
